FAERS Safety Report 6962390-5 (Version None)
Quarter: 2010Q3

REPORT INFORMATION
  Report Type: 
  Country: None (occurrence: None)
  Receive Date: 20100902
  Receipt Date: 20100824
  Transmission Date: 20110219
  Serious: Yes (Hospitalization)
  Sender: FDA-Public Use
  Company Number: PT-JNJFOC-20100703758

PATIENT
  Age: 66 Year
  Sex: Female

DRUGS (8)
  1. DOXIL [Suspect]
     Indication: MULTIPLE MYELOMA
     Route: 042
     Dates: start: 20100504
  2. DOXIL [Suspect]
     Route: 042
     Dates: start: 20100504
  3. VELCADE [Suspect]
     Indication: MULTIPLE MYELOMA
     Dates: start: 20100504
  4. VELCADE [Suspect]
     Dates: start: 20100504
  5. LERCANIDIPINE [Suspect]
     Indication: HYPERTENSION
     Route: 048
  6. DEXAMETHASONE [Concomitant]
     Indication: MULTIPLE MYELOMA
     Route: 065
     Dates: start: 20100504
  7. DEXAMETHASONE [Concomitant]
     Route: 065
     Dates: start: 20100504
  8. DIOVAN HCT [Concomitant]
     Indication: HYPERTENSION

REACTIONS (1)
  - TOXIC SKIN ERUPTION [None]
